FAERS Safety Report 10247886 (Version 1)
Quarter: 2014Q2

REPORT INFORMATION
  Report Type: Spontaneous
  Country: RS (occurrence: RS)
  Receive Date: 20140619
  Receipt Date: 20140619
  Transmission Date: 20141212
  Serious: Yes (Death)
  Sender: FDA-Public Use
  Company Number: RS-JNJFOC-20140607092

PATIENT
  Age: 43 Year
  Sex: Male

DRUGS (4)
  1. RISPOLEPT CONSTA [Suspect]
     Indication: PRODUCT USED FOR UNKNOWN INDICATION
     Route: 030
  2. ZOLOFT [Concomitant]
     Route: 048
  3. LORAZEPAM [Concomitant]
     Route: 048
  4. SANVAL [Concomitant]
     Route: 048

REACTIONS (1)
  - Completed suicide [Fatal]
